FAERS Safety Report 13563739 (Version 1)
Quarter: 2017Q2

REPORT INFORMATION
  Report Type: Spontaneous
  Country: SE (occurrence: SE)
  Receive Date: 20170519
  Receipt Date: 20170519
  Transmission Date: 20170830
  Serious: Yes (Other)
  Sender: FDA-Public Use
  Company Number: SE-PFIZER INC-2017211851

PATIENT
  Age: 32 Year
  Sex: Female

DRUGS (6)
  1. NUVARING [Concomitant]
     Active Substance: ETHINYL ESTRADIOL\ETONOGESTREL
     Dosage: UNK
  2. KAVEPENIN [Suspect]
     Active Substance: PHENOXYMETHYLPENICILLIN CALCIUM
     Indication: TONSILLITIS
     Dosage: 3 G, DAILY
     Route: 048
     Dates: start: 20130312, end: 20130314
  3. TRANDATE [Concomitant]
     Active Substance: LABETALOL HYDROCHLORIDE
     Dosage: UNK
  4. LEVAXIN [Concomitant]
     Active Substance: LEVOTHYROXINE SODIUM
     Dosage: UNK
  5. DALACIN [Suspect]
     Active Substance: CLINDAMYCIN
     Indication: TONSILLITIS
     Dosage: 600 MG, DAILY
     Route: 048
     Dates: start: 20130314, end: 20130315
  6. CERAZETTE [Concomitant]
     Active Substance: DESOGESTREL
     Dosage: UNK

REACTIONS (3)
  - Urticaria [Recovered/Resolved]
  - Rash [Recovered/Resolved]
  - Lip swelling [Recovered/Resolved]

NARRATIVE: CASE EVENT DATE: 20130313
